FAERS Safety Report 6154881-4 (Version None)
Quarter: 2009Q2

REPORT INFORMATION
  Report Type: 
  Country: None (occurrence: None)
  Receive Date: 20090414
  Receipt Date: 20090402
  Transmission Date: 20091009
  Serious: Yes (Other)
  Sender: FDA-Public Use
  Company Number: PHHY2009BR12623

PATIENT
  Age: 31 Year
  Sex: Female
  Weight: 73 kg

DRUGS (8)
  1. PAMELOR [Suspect]
     Indication: ANXIETY DISORDER
     Dosage: 50 MG, QD
     Dates: start: 20090220
  2. TRILEPTAL [Suspect]
     Indication: ANXIETY DISORDER
     Dosage: 300 MG, QD
     Dates: start: 20090220
  3. TEGRETOL [Suspect]
     Indication: ANXIETY DISORDER
     Dosage: 200 MG, QD (NIGHT)
     Route: 048
     Dates: start: 20090306
  4. TEGRETOL [Suspect]
     Dosage: ? TABLET OF 200MG
     Dates: start: 20090311
  5. TEGRETOL [Suspect]
     Dosage: 1 TAB
     Dates: start: 20090401
  6. FLUOXETINE [Suspect]
     Dosage: 20 MG, QD
     Dates: start: 20090306
  7. RIVOTRIL [Concomitant]
     Dosage: 0.5 MG, QD
     Dates: start: 20090306
  8. AMITRIPTLINE HYDROCHLORIDE TAB [Concomitant]
     Dosage: 20 MG, QD
     Dates: start: 20090309

REACTIONS (12)
  - ABDOMINAL PAIN UPPER [None]
  - COLD SWEAT [None]
  - FEELING COLD [None]
  - FEELING HOT [None]
  - HEADACHE [None]
  - HEPATOMEGALY [None]
  - HYPERHIDROSIS [None]
  - INSOMNIA [None]
  - MUSCLE CONTRACTIONS INVOLUNTARY [None]
  - MUSCLE SPASMS [None]
  - NAUSEA [None]
  - VISION BLURRED [None]
